FAERS Safety Report 9613129 (Version 1)
Quarter: 2013Q4

REPORT INFORMATION
  Report Type: Report from Study
  Country: VE (occurrence: VE)
  Receive Date: 20131010
  Receipt Date: 20131010
  Transmission Date: 20140711
  Serious: Yes (Other)
  Sender: FDA-Public Use
  Company Number: VE-ABBVIE-13P-178-1156134-00

PATIENT
  Age: 63 Year
  Sex: Female
  Weight: 80 kg

DRUGS (3)
  1. HUMIRA [Suspect]
     Indication: RHEUMATOID ARTHRITIS
     Route: 058
     Dates: start: 20071201, end: 201306
  2. HUMIRA [Suspect]
     Route: 058
     Dates: start: 201307, end: 20130831
  3. ARAVA [Concomitant]
     Indication: RHEUMATOID ARTHRITIS
     Route: 048
     Dates: start: 201309

REACTIONS (1)
  - Tuberculin test positive [Not Recovered/Not Resolved]
